FAERS Safety Report 5800756-7 (Version None)
Quarter: 2008Q3

REPORT INFORMATION
  Report Type: 
  Country: None (occurrence: None)
  Receive Date: 20080703
  Receipt Date: 20080626
  Transmission Date: 20090109
  Serious: Yes (Life-Threatening)
  Sender: FDA-Public Use
  Company Number: NL-ABBOTT-08P-114-0459865-00

PATIENT
  Sex: Male
  Weight: 70 kg

DRUGS (1)
  1. KALETRA [Suspect]
     Indication: DRUG USE FOR UNKNOWN INDICATION
     Dosage: 133.3/33.3 MG
     Dates: start: 20060615, end: 20070501

REACTIONS (1)
  - CARDIOVASCULAR DISORDER [None]
